FAERS Safety Report 6405875-2 (Version None)
Quarter: 2009Q4

REPORT INFORMATION
  Report Type: 
  Country: None (occurrence: None)
  Receive Date: 20091019
  Receipt Date: 20091015
  Transmission Date: 20100525
  Serious: Yes (Hospitalization)
  Sender: FDA-Public Use
  Company Number: NL-BRISTOL-MYERS SQUIBB COMPANY-14809958

PATIENT
  Age: 59 Year
  Sex: Female
  Weight: 90 kg

DRUGS (18)
  1. CISPLATIN [Suspect]
     Indication: NON-SMALL CELL LUNG CANCER
     Route: 042
     Dates: start: 20090916
  2. ALIMTA [Suspect]
     Indication: NON-SMALL CELL LUNG CANCER
     Route: 042
     Dates: start: 20090916
  3. FOLIC ACID [Concomitant]
     Indication: PROPHYLAXIS
     Dates: start: 20090909
  4. VITAMIN B-12 [Concomitant]
     Indication: PROPHYLAXIS
     Dates: start: 20090825
  5. DEXAMETHASONE [Concomitant]
     Indication: PROPHYLAXIS
     Dates: start: 20090915, end: 20090919
  6. OSCAL [Concomitant]
     Indication: CARDIOVASCULAR EVENT PROPHYLAXIS
     Dates: start: 20050501
  7. SELOKEEN [Concomitant]
     Indication: HYPERTENSION
  8. LIPITOR [Concomitant]
     Indication: HYPERCHOLESTEROLAEMIA
  9. METFORMIN HYDROCHLORIDE [Concomitant]
     Indication: DIABETES MELLITUS
  10. COZAAR [Concomitant]
     Indication: HYPERTENSION
  11. MOVICOLON [Concomitant]
     Indication: CONSTIPATION PROPHYLAXIS
     Dates: start: 20090802
  12. PANTOZOL [Concomitant]
     Indication: PROPHYLAXIS
  13. THYRAX [Concomitant]
     Indication: HYPOTHYROIDISM
  14. SPIRIVA [Concomitant]
     Indication: DYSPNOEA
     Dates: start: 20090813
  15. PRIMPERAN [Concomitant]
     Indication: PROPHYLAXIS OF NAUSEA AND VOMITING
     Dates: start: 20090916
  16. FUROSEMIDE [Concomitant]
     Indication: HYPERTENSION
  17. OXYCONTIN [Concomitant]
     Indication: PAIN IN EXTREMITY
  18. ENEMOL [Concomitant]
     Indication: PROPHYLAXIS OF NAUSEA AND VOMITING
     Dates: start: 20090916, end: 20090918

REACTIONS (1)
  - C-REACTIVE PROTEIN INCREASED [None]
